FAERS Safety Report 13299209 (Version 4)
Quarter: 2018Q3

REPORT INFORMATION
  Report Type: Spontaneous
  Country: FR (occurrence: FR)
  Receive Date: 20170306
  Receipt Date: 20180925
  Transmission Date: 20181010
  Serious: Yes (Hospitalization)
  Sender: FDA-Public Use
  Company Number: FR-PFIZER INC-2017089160

PATIENT
  Age: 66 Year
  Sex: Male

DRUGS (10)
  1. ALDACTONE [Suspect]
     Active Substance: SPIRONOLACTONE
     Indication: HYPERTENSION
     Dosage: 25 MG, 1X/DAY
     Route: 048
     Dates: start: 20161216, end: 20161222
  2. PAROXETINE ARROW [Suspect]
     Active Substance: PAROXETINE
     Dosage: 20 MG, 1X/DAY
     Route: 048
     Dates: start: 20161214, end: 20161222
  3. HYPERIUM [Suspect]
     Active Substance: RILMENIDINE PHOSPHATE
     Indication: HYPERTENSION
     Dosage: 1 MG, 2X/DAY
     Route: 048
     Dates: start: 20161215, end: 20161222
  4. FLAGYL [Suspect]
     Active Substance: METRONIDAZOLE\METRONIDAZOLE HYDROCHLORIDE
     Dosage: 500 MG, 3X/DAY
     Route: 048
     Dates: start: 20161213, end: 20161222
  5. LERCAN [Concomitant]
     Active Substance: LERCANIDIPINE
     Dosage: UNK
  6. INEXIUM [Suspect]
     Active Substance: ESOMEPRAZOLE
     Dosage: 20 MG, 1X/DAY
     Route: 048
     Dates: start: 20161214, end: 20161222
  7. LEVETIRACETAM MYLAN [Suspect]
     Active Substance: LEVETIRACETAM
     Indication: FOCAL DYSCOGNITIVE SEIZURES
     Dosage: 250 MG, 2X/DAY
     Route: 048
     Dates: start: 20161219, end: 20161222
  8. VISIPAQUE [Suspect]
     Active Substance: IODIXANOL
     Indication: COMPUTERISED TOMOGRAM HEAD
     Dosage: 50 ML, SINGLE
     Route: 013
     Dates: start: 20161219, end: 20161219
  9. CEFTRIAXONE MYLAN [Suspect]
     Active Substance: CEFTRIAXONE
     Dosage: 1 G, 1X/DAY
     Route: 041
     Dates: start: 20161214, end: 20161222
  10. DIFFU K [Concomitant]
     Active Substance: POTASSIUM CHLORIDE
     Dosage: UNK

REACTIONS (2)
  - Rash maculo-papular [Recovered/Resolved]
  - Acute generalised exanthematous pustulosis [Recovered/Resolved]

NARRATIVE: CASE EVENT DATE: 20161221
